FAERS Safety Report 18266298 (Version 4)
Quarter: 2020Q4

REPORT INFORMATION
  Report Type: Spontaneous
  Country: JP (occurrence: JP)
  Receive Date: 20200915
  Receipt Date: 20201130
  Transmission Date: 20210113
  Serious: Yes (Hospitalization, Other)
  Sender: FDA-Public Use
  Company Number: JP-AMGEN-JPNSP2020147516

PATIENT
  Age: 82 Year
  Sex: Female

DRUGS (10)
  1. NEXIUM [Suspect]
     Active Substance: ESOMEPRAZOLE MAGNESIUM
     Indication: ARTHRITIS
  2. BAKTAR [Suspect]
     Active Substance: SULFAMETHOXAZOLE\TRIMETHOPRIM
     Indication: ARTHRITIS
  3. BAKTAR [Suspect]
     Active Substance: SULFAMETHOXAZOLE\TRIMETHOPRIM
     Indication: RASH
  4. NEXIUM [Suspect]
     Active Substance: ESOMEPRAZOLE MAGNESIUM
     Indication: PYREXIA
     Dosage: UNK
     Route: 065
     Dates: start: 2020, end: 20200722
  5. CELECOX [Suspect]
     Active Substance: CELECOXIB
     Indication: ARTHRITIS
  6. EVENITY [Suspect]
     Active Substance: ROMOSOZUMAB-AQQG
     Indication: OSTEOPOROSIS
     Dosage: 210 MILLIGRAM
     Route: 058
     Dates: start: 20200612, end: 20200612
  7. BAKTAR [Suspect]
     Active Substance: SULFAMETHOXAZOLE\TRIMETHOPRIM
     Indication: PYREXIA
     Dosage: UNK
     Route: 065
     Dates: start: 2020
  8. CELECOX [Suspect]
     Active Substance: CELECOXIB
     Indication: PYREXIA
     Dosage: 100 MILLIGRAM, BID
     Route: 065
     Dates: start: 20200716, end: 20200722
  9. CELECOX [Suspect]
     Active Substance: CELECOXIB
     Indication: RASH
  10. NEXIUM [Suspect]
     Active Substance: ESOMEPRAZOLE MAGNESIUM
     Indication: RASH

REACTIONS (6)
  - Arthritis [Recovered/Resolved]
  - Still^s disease [Recovered/Resolved]
  - Lip swelling [Recovered/Resolved]
  - Eye pruritus [Recovered/Resolved]
  - Deep vein thrombosis [Recovered/Resolved]
  - Pyrexia [Recovered/Resolved]

NARRATIVE: CASE EVENT DATE: 20200615
